FAERS Safety Report 8089163-7 (Version None)
Quarter: 2012Q1

REPORT INFORMATION
  Report Type: 
  Country: None (occurrence: None)
  Receive Date: 20120128
  Receipt Date: 20110829
  Transmission Date: 20120608
  Serious: No
  Sender: FDA-Public Use
  Company Number: US-ABBOTT-11P-163-0732193-00

PATIENT
  Sex: Female
  Weight: 100.33 kg

DRUGS (2)
  1. HUMIRA [Suspect]
     Indication: PSORIASIS
     Route: 058
     Dates: start: 20100701
  2. PROZAC [Concomitant]
     Indication: DEPRESSION
     Route: 048

REACTIONS (6)
  - PSORIASIS [None]
  - PRURITUS [None]
  - DRUG DOSE OMISSION [None]
  - ERYTHEMA [None]
  - DEVICE MALFUNCTION [None]
  - INCORRECT DOSE ADMINISTERED BY DEVICE [None]
